FAERS Safety Report 15396919 (Version 3)
Quarter: 2018Q4

REPORT INFORMATION
  Report Type: Spontaneous
  Country: IT (occurrence: IT)
  Receive Date: 20180918
  Receipt Date: 20180926
  Transmission Date: 20190204
  Serious: Yes (Hospitalization, Other)
  Sender: FDA-Public Use
  Company Number: IT-PFIZER INC-2018375251

PATIENT
  Age: 80 Year
  Sex: Male

DRUGS (8)
  1. FUROSEMIDE. [Concomitant]
     Active Substance: FUROSEMIDE
     Dosage: 50 MG
  2. CARVEDILOL. [Interacting]
     Active Substance: CARVEDILOL
     Indication: HYPERTENSIVE HEART DISEASE
     Dosage: 25 MG, DAILY
     Route: 048
  3. LUVION (CANRENOIC ACID) [Interacting]
     Active Substance: CANRENOIC ACID
     Indication: HYPERTENSIVE HEART DISEASE
     Dosage: 50 MG, DAILY
     Route: 048
  4. LUVION (POTASSIUM CANRENOATE) [Interacting]
     Active Substance: CANRENOATE POTASSIUM
     Indication: HYPERTENSIVE HEART DISEASE
     Dosage: 50 MG, DAILY
     Route: 048
  5. FINASTERIDE. [Concomitant]
     Active Substance: FINASTERIDE
     Dosage: UNK
  6. ALFUZOSIN HYDROCHLORIDE. [Concomitant]
     Active Substance: ALFUZOSIN HYDROCHLORIDE
     Dosage: UNK
     Dates: start: 20121231
  7. TRIATEC (RAMIPRIL) [Suspect]
     Active Substance: RAMIPRIL
     Indication: HYPERTENSIVE HEART DISEASE
     Dosage: 20 MG, DAILY
     Route: 048
     Dates: start: 20121231, end: 20180720
  8. LANSOPRAZOLE. [Concomitant]
     Active Substance: LANSOPRAZOLE
     Dosage: UNK

REACTIONS (4)
  - Drug interaction [Unknown]
  - Bradyarrhythmia [Recovered/Resolved]
  - Hyperkalaemia [Recovered/Resolved]
  - Acute kidney injury [Recovered/Resolved]

NARRATIVE: CASE EVENT DATE: 20180720
